FAERS Safety Report 15089431 (Version 1)
Quarter: 2018Q3

REPORT INFORMATION
  Report Type: Spontaneous
  Country: US (occurrence: US)
  Receive Date: 20180629
  Receipt Date: 20180629
  Transmission Date: 20181010
  Serious: No
  Sender: FDA-Public Use
  Company Number: US-TARO-2018TAR00363

PATIENT
  Sex: Female

DRUGS (2)
  1. CLINDAMYCIN PHOSPHATE AND BENZOYL PEROXIDE GEL 1.2%/5% [Suspect]
     Active Substance: BENZOYL PEROXIDE\CLINDAMYCIN PHOSPHATE
  2. EPIDUO [Suspect]
     Active Substance: ADAPALENE\BENZOYL PEROXIDE

REACTIONS (1)
  - Drug ineffective [Recovered/Resolved]
